FAERS Safety Report 20854393 (Version 1)
Quarter: 2022Q2

REPORT INFORMATION
  Report Type: Spontaneous
  Country: US (occurrence: None)
  Receive Date: 20220519
  Receipt Date: 20220519
  Transmission Date: 20220721
  Serious: No
  Sender: FDA-Public Use
  Company Number: None

PATIENT
  Sex: Female

DRUGS (1)
  1. OPSUMIT [Suspect]
     Active Substance: MACITENTAN
     Indication: Pulmonary arterial hypertension
     Dosage: FREQUENCY : DAILY;?
     Route: 048
     Dates: start: 20211223

REACTIONS (7)
  - Drug ineffective [None]
  - Headache [None]
  - Diarrhoea [None]
  - Vision blurred [None]
  - Pain [None]
  - Myalgia [None]
  - Malaise [None]
